FAERS Safety Report 19449682 (Version 1)
Quarter: 2021Q2

REPORT INFORMATION
  Report Type: Spontaneous
  Country: TW (occurrence: TW)
  Receive Date: 20210622
  Receipt Date: 20210622
  Transmission Date: 20210717
  Serious: Yes (Hospitalization, Other)
  Sender: FDA-Public Use
  Company Number: TW-009507513-2106TWN004329

PATIENT
  Age: 31 Year
  Sex: Female

DRUGS (3)
  1. METHYLPREDNISOLONE. [Concomitant]
     Active Substance: METHYLPREDNISOLONE
     Indication: MYASTHENIA GRAVIS
  2. PEMBROLIZUMAB. [Suspect]
     Active Substance: PEMBROLIZUMAB
     Indication: THYMOMA
     Dosage: 2 MILLIGRAM/KILOGRAM, FREQUENCY NOT REPORTED
  3. PYRIDOSTIGMINE [Concomitant]
     Active Substance: PYRIDOSTIGMINE
     Indication: MYASTHENIA GRAVIS

REACTIONS (4)
  - Rash morbilliform [Unknown]
  - Pneumonitis [Unknown]
  - Ulcerative keratitis [Recovered/Resolved]
  - Product use in unapproved indication [Unknown]
